FAERS Safety Report 8576092-5 (Version None)
Quarter: 2012Q3

REPORT INFORMATION
  Report Type: 
  Country: None (occurrence: None)
  Receive Date: 20120807
  Receipt Date: 20120727
  Transmission Date: 20120928
  Serious: Yes (Hospitalization)
  Sender: FDA-Public Use
  Company Number: US-AMGEN-USASP2012033558

PATIENT
  Age: 74 Year
  Sex: Female
  Weight: 53.515 kg

DRUGS (10)
  1. PROLIA [Suspect]
     Dosage: 60 MG, Q6MO
     Route: 058
     Dates: start: 20120302
  2. AMIODARONE HCL [Concomitant]
     Indication: ATRIAL FIBRILLATION
     Dosage: 200 MG, UNK
     Route: 048
  3. MERCAPTOPURINE [Concomitant]
     Indication: COLITIS ULCERATIVE
     Dosage: 50 MG, UNK
     Route: 048
  4. WARFARIN SODIUM [Concomitant]
     Dosage: 5 MG, UNK
     Route: 048
  5. PROLIA [Suspect]
     Indication: OSTEOPOROSIS POSTMENOPAUSAL
     Dosage: 60 MG, Q6MO
     Route: 058
     Dates: start: 20110809
  6. CALCIUM +VIT D [Concomitant]
     Dosage: UNK
  7. FISH OIL [Concomitant]
  8. ASACOL [Concomitant]
     Indication: COLITIS ULCERATIVE
     Dosage: 400 MG, UNK
     Route: 048
  9. WARFARIN SODIUM [Concomitant]
     Indication: ATRIAL FIBRILLATION
     Dosage: 5 MG, UNK
  10. LEVOTHYROXINE SODIUM [Concomitant]
     Indication: THYROID DISORDER
     Dosage: 75 MUG, UNK
     Route: 048

REACTIONS (6)
  - MOBILITY DECREASED [None]
  - PATHOLOGICAL FRACTURE [None]
  - PAIN IN EXTREMITY [None]
  - SENSORY DISTURBANCE [None]
  - ARTHRALGIA [None]
  - WALKING AID USER [None]
